FAERS Safety Report 5728063-1 (Version None)
Quarter: 2008Q2

REPORT INFORMATION
  Report Type: 
  Country: None (occurrence: None)
  Receive Date: 20080505
  Receipt Date: 20080423
  Transmission Date: 20081010
  Serious: Yes (Other)
  Sender: FDA-Public Use
  Company Number: US-PFIZER INC-2008036462

PATIENT
  Sex: Male
  Weight: 95.3 kg

DRUGS (6)
  1. SUTENT [Suspect]
     Route: 048
  2. LIPITOR [Concomitant]
  3. OMEPRAZOLE [Concomitant]
  4. BENAZEPRIL HYDROCHLORIDE [Concomitant]
  5. TRAMADOL HCL [Concomitant]
  6. ACETAMINOPHEN [Concomitant]

REACTIONS (4)
  - DYSGEUSIA [None]
  - FATIGUE [None]
  - HIATUS HERNIA [None]
  - HYPERTENSION [None]
